FAERS Safety Report 7396568-6 (Version None)
Quarter: 2011Q2

REPORT INFORMATION
  Report Type: 
  Country: None (occurrence: None)
  Receive Date: 20110406
  Receipt Date: 20110401
  Transmission Date: 20111010
  Serious: Yes (Hospitalization, Other)
  Sender: FDA-Public Use
  Company Number: US-ASTRAZENECA-2007UW21657

PATIENT
  Age: 550 Month
  Sex: Female

DRUGS (55)
  1. SEROQUEL [Suspect]
     Dosage: 50 TO 400 MG
     Route: 048
     Dates: start: 20020802
  2. SEROQUEL [Suspect]
     Dosage: 100 TO 400 MG
     Route: 048
     Dates: start: 20031126
  3. SEROQUEL [Suspect]
     Route: 048
     Dates: start: 20061019
  4. SEROQUEL [Suspect]
     Route: 048
     Dates: start: 20061019
  5. PROZAC [Concomitant]
     Dates: start: 20031126
  6. PROZAC [Concomitant]
     Dates: start: 20060127
  7. RISPERDAL [Concomitant]
     Indication: DEPRESSION
     Dates: start: 20010712, end: 20010801
  8. ABILIFY [Concomitant]
     Dates: start: 20070828
  9. ABILIFY [Concomitant]
     Dates: start: 20081006
  10. SEROQUEL [Suspect]
     Dosage: 100-700 MG
     Route: 048
     Dates: start: 20020226, end: 20050101
  11. SEROQUEL [Suspect]
     Dosage: 100-700 MG
     Route: 048
     Dates: start: 20020226, end: 20050101
  12. SEROQUEL [Suspect]
     Route: 048
     Dates: start: 20060127
  13. SEROQUEL [Suspect]
     Route: 048
     Dates: start: 20061019
  14. LIPITOR [Concomitant]
     Dates: start: 20060127
  15. NEXIUM [Concomitant]
     Dates: start: 20060216
  16. RISPERDAL [Concomitant]
     Indication: BIPOLAR DISORDER
     Dates: start: 20010712, end: 20010801
  17. SEROQUEL [Suspect]
     Dosage: 100-700 MG
     Route: 048
     Dates: start: 20020226, end: 20050101
  18. SEROQUEL [Suspect]
     Dosage: 100MG-700 MG
     Route: 048
     Dates: start: 20020226, end: 20051201
  19. SEROQUEL [Suspect]
     Dosage: 100 TO 400 MG
     Route: 048
     Dates: start: 20031126
  20. LIPITOR [Concomitant]
     Dates: start: 20081006
  21. ASPIRIN [Concomitant]
     Dates: start: 20060127
  22. SEROQUEL [Suspect]
     Dosage: 100MG-700 MG
     Route: 048
     Dates: start: 20020226, end: 20051201
  23. SEROQUEL [Suspect]
     Dosage: 100MG-700 MG
     Route: 048
     Dates: start: 20020226, end: 20051201
  24. SEROQUEL [Suspect]
     Dosage: 100MG-700 MG
     Route: 048
     Dates: start: 20020226, end: 20051201
  25. SEROQUEL [Suspect]
     Dosage: 100 TO 400 MG
     Route: 048
     Dates: start: 20031126
  26. RISPERDAL [Concomitant]
     Indication: SCHIZOPHRENIA
     Dates: start: 20010712, end: 20010801
  27. PREVACID [Concomitant]
     Dates: start: 20091214
  28. SEROQUEL [Suspect]
     Indication: ANXIETY
     Dosage: 100 MG - 200 MG
     Route: 048
     Dates: start: 20020201, end: 20070401
  29. SEROQUEL [Suspect]
     Dosage: 50 TO 400 MG
     Route: 048
     Dates: start: 20020802
  30. SEROQUEL [Suspect]
     Route: 048
     Dates: start: 20060127
  31. SEROQUEL [Suspect]
     Route: 048
     Dates: start: 20060127
  32. SEROQUEL [Suspect]
     Route: 048
     Dates: start: 20061019
  33. GEODON [Concomitant]
     Dates: start: 20061128
  34. ZETIA [Concomitant]
     Dates: start: 20060127
  35. SEROQUEL [Suspect]
     Dosage: 100-700 MG
     Route: 048
     Dates: start: 20020226, end: 20050101
  36. SEROQUEL [Suspect]
     Dosage: 50 TO 400 MG
     Route: 048
     Dates: start: 20020802
  37. SEROQUEL [Suspect]
     Route: 048
     Dates: start: 20060127
  38. METOPROLOL TART [Concomitant]
     Dates: start: 20061019
  39. PREVACID [Concomitant]
     Dates: start: 20081006
  40. DIOVAN [Concomitant]
     Dates: start: 20081006
  41. SEROQUEL [Suspect]
     Indication: SLEEP DISORDER
     Dosage: 100 MG - 200 MG
     Route: 048
     Dates: start: 20020201, end: 20070401
  42. SEROQUEL [Suspect]
     Indication: SCHIZOPHRENIA
     Dosage: 100 MG - 200 MG
     Route: 048
     Dates: start: 20020201, end: 20070401
  43. SEROQUEL [Suspect]
     Dosage: 100-700 MG
     Route: 048
     Dates: start: 20020226, end: 20050101
  44. SEROQUEL [Suspect]
     Dosage: 100MG-700 MG
     Route: 048
     Dates: start: 20020226, end: 20051201
  45. SEROQUEL [Suspect]
     Dosage: 50 TO 400 MG
     Route: 048
     Dates: start: 20020802
  46. SEROQUEL [Suspect]
     Dosage: 50 TO 400 MG
     Route: 048
     Dates: start: 20020802
  47. SEROQUEL [Suspect]
     Dosage: 100 TO 400 MG
     Route: 048
     Dates: start: 20031126
  48. SYNTHROID [Concomitant]
     Dates: start: 20060127
  49. PANTOPRAZOLE [Concomitant]
     Dates: start: 20061017
  50. PLAVIX [Concomitant]
     Dates: start: 20091214
  51. SEROQUEL [Suspect]
     Indication: DEPRESSION
     Dosage: 100 MG - 200 MG
     Route: 048
     Dates: start: 20020201, end: 20070401
  52. SEROQUEL [Suspect]
     Indication: BIPOLAR DISORDER
     Dosage: 100 MG - 200 MG
     Route: 048
     Dates: start: 20020201, end: 20070401
  53. SEROQUEL [Suspect]
     Dosage: 100 TO 400 MG
     Route: 048
     Dates: start: 20031126
  54. SEROQUEL [Suspect]
     Route: 048
     Dates: start: 20060127
  55. SEROQUEL [Suspect]
     Route: 048
     Dates: start: 20061019

REACTIONS (12)
  - PANCREATITIS ACUTE [None]
  - INCREASED APPETITE [None]
  - DIABETIC KETOACIDOSIS [None]
  - CHOLELITHIASIS [None]
  - DIABETIC COMPLICATION [None]
  - TYPE 2 DIABETES MELLITUS [None]
  - PNEUMOBILIA [None]
  - HYPERLIPIDAEMIA [None]
  - BLOOD CHOLESTEROL INCREASED [None]
  - BLOOD TRIGLYCERIDES INCREASED [None]
  - VISION BLURRED [None]
  - FATIGUE [None]
